FAERS Safety Report 24132222 (Version 2)
Quarter: 2024Q3

REPORT INFORMATION
  Report Type: Spontaneous
  Country: PE (occurrence: PE)
  Receive Date: 20240724
  Receipt Date: 20240803
  Transmission Date: 20241017
  Serious: Yes (Death)
  Sender: MACLEODS
  Company Number: PE-MACLEODS PHARMA-MAC2024048378

PATIENT

DRUGS (10)
  1. QUETIAPINE [Suspect]
     Active Substance: QUETIAPINE
     Indication: Insomnia
     Dosage: AT NIGHT
     Route: 048
     Dates: start: 20230424, end: 20231018
  2. CLOZAPINE [Concomitant]
     Active Substance: CLOZAPINE
     Indication: Restlessness
     Dosage: 1 AT NIGHT
     Route: 065
     Dates: start: 20100429, end: 20231018
  3. CLOZAPINE [Concomitant]
     Active Substance: CLOZAPINE
     Indication: Agitation
  4. HALDOL [Concomitant]
     Active Substance: HALOPERIDOL
     Indication: Schizophrenia
     Route: 048
     Dates: start: 20100424, end: 20231019
  5. SULPIRIDE [Concomitant]
     Active Substance: SULPIRIDE
     Indication: Schizophrenia
     Dosage: MORNING, AFTERNOON AND NIGHT
     Route: 065
     Dates: start: 20150424, end: 20231018
  6. BIPERIDEN [Concomitant]
     Active Substance: BIPERIDEN
     Indication: Product used for unknown indication
     Dosage: NIGHT
     Route: 065
  7. ZOLPIDEM [Concomitant]
     Active Substance: ZOLPIDEM TARTRATE
     Indication: Product used for unknown indication
     Dosage: 1 DAILY
     Route: 065
  8. Haloperidol IQ [Concomitant]
     Indication: Schizophrenia
     Route: 065
  9. NEUTIN [Concomitant]
     Indication: Product used for unknown indication
     Route: 065
  10. CLONAZEPAM [Concomitant]
     Active Substance: CLONAZEPAM
     Indication: Product used for unknown indication
     Route: 065

REACTIONS (2)
  - Acute respiratory failure [Fatal]
  - Epilepsy [Fatal]
